FAERS Safety Report 6130624-5 (Version None)
Quarter: 2009Q1

REPORT INFORMATION
  Report Type: 
  Country: None (occurrence: None)
  Receive Date: 20090323
  Receipt Date: 20090308
  Transmission Date: 20090719
  Serious: Yes (Other)
  Sender: FDA-Public Use
  Company Number: 2007S1003653

PATIENT
  Age: 60 Year
  Sex: Female
  Weight: 86.1834 kg

DRUGS (16)
  1. PHOSPHOSODA FLAVOR NOT SPECIFIED [Suspect]
     Indication: COLONOSCOPY
     Dosage: 90 ML;TOTAL;PO
     Route: 048
     Dates: start: 20060606, end: 20060606
  2. LORTAB [Concomitant]
  3. VYTORIN [Concomitant]
  4. LEVOXYL [Concomitant]
  5. SIMETHICONE [Concomitant]
  6. GLIPIZIDE [Concomitant]
  7. ZOLOFT [Concomitant]
  8. METRONIDAZOLE [Concomitant]
  9. METFORMIN HCL [Concomitant]
  10. RANITIDINE [Concomitant]
  11. BACTRIM [Concomitant]
  12. FOSAMAX [Concomitant]
  13. BENAZEPRIL HYDROCHLORIDE [Concomitant]
  14. DULCOLAX [Concomitant]
  15. VISICOL [Concomitant]
  16. METOCLOPRAMIDE [Concomitant]

REACTIONS (5)
  - INJURY [None]
  - NEPHROCALCINOSIS [None]
  - RENAL FAILURE ACUTE [None]
  - RENAL FAILURE CHRONIC [None]
  - VOMITING [None]
